FAERS Safety Report 6603943-3 (Version None)
Quarter: 2010Q1

REPORT INFORMATION
  Report Type: 
  Country: None (occurrence: None)
  Receive Date: 20100226
  Receipt Date: 20090324
  Transmission Date: 20100710
  Serious: No
  Sender: FDA-Public Use
  Company Number: A0775065A

PATIENT
  Age: 43 Year
  Sex: Female

DRUGS (6)
  1. LAMICTAL CD [Suspect]
     Indication: BIPOLAR DISORDER
     Dosage: 350MG PER DAY
     Route: 048
  2. SEROQUEL [Concomitant]
  3. SYNTHROID [Concomitant]
  4. IRON [Concomitant]
  5. CALCIUM [Concomitant]
  6. LISINOPRIL [Concomitant]

REACTIONS (2)
  - PARAESTHESIA [None]
  - PROTEIN URINE [None]
